FAERS Safety Report 8102873-8 (Version None)
Quarter: 2012Q1

REPORT INFORMATION
  Report Type: 
  Country: None (occurrence: None)
  Receive Date: 20120201
  Receipt Date: 20120126
  Transmission Date: 20120608
  Serious: Yes (Hospitalization)
  Sender: FDA-Public Use
  Company Number: JP-BAYER-2011-069515

PATIENT
  Age: 48 Year
  Sex: Male
  Weight: 50 kg

DRUGS (11)
  1. NEXAVAR [Suspect]
     Dosage: 600 MG, UNK
     Route: 048
     Dates: start: 20111101, end: 20111101
  2. NEXAVAR [Suspect]
     Dosage: 800 MG, UNK
     Route: 048
     Dates: start: 20111101, end: 20111129
  3. NATEGLINIDE [Concomitant]
     Dosage: DAILY DOSE 50 MG
     Route: 048
  4. ANTAGOSTIN [Concomitant]
     Indication: PROPHYLAXIS AGAINST GASTROINTESTINAL ULCER
     Dosage: DAILY DOSE 50 MG
     Route: 048
  5. LORFENAMIN [Concomitant]
     Indication: PAIN
     Dosage: DAILY DOSE 60 MG
     Route: 048
  6. RABEPRAZOLE SODIUM [Concomitant]
     Indication: ABDOMINAL PAIN UPPER
     Dosage: DAILY DOSE 20 MG
     Route: 048
  7. MAGNESIUM SULFATE [Concomitant]
     Dosage: DAILY DOSE 1980 MG
     Route: 048
  8. CISPLATIN [Concomitant]
     Indication: THERAPEUTIC EMBOLISATION
     Dosage: DAILY DOSE 90 ML
     Dates: start: 20111130, end: 20111130
  9. NEXAVAR [Suspect]
     Dosage: DAILY DOSE 800 MG
     Route: 048
     Dates: start: 20111223
  10. NEXAVAR [Suspect]
     Indication: HEPATIC NEOPLASM MALIGNANT
     Dosage: 400 MG, QD
     Route: 048
     Dates: start: 20110612
  11. BARACLUDE [Concomitant]
     Dosage: DAILY DOSE .5 MG
     Route: 048

REACTIONS (4)
  - LIVER ABSCESS [None]
  - PALMAR-PLANTAR ERYTHRODYSAESTHESIA SYNDROME [None]
  - PYREXIA [None]
  - COUGH [None]
